FAERS Safety Report 5566522-5 (Version None)
Quarter: 2007Q4

REPORT INFORMATION
  Report Type: 
  Country: None (occurrence: None)
  Receive Date: 20071214
  Receipt Date: 20071210
  Transmission Date: 20080405
  Serious: Yes (Life-Threatening, Hospitalization, Other)
  Sender: FDA-Public Use
  Company Number: CLOF-10782

PATIENT
  Age: 46 Year
  Sex: Female
  Weight: 53.1 kg

DRUGS (4)
  1. CLOFARABINE. MFR: GENZYME [Suspect]
     Indication: ACUTE MYELOID LEUKAEMIA
     Dosage: 30 MG/M2 IV
     Route: 042
     Dates: start: 20070926, end: 20070929
  2. FLUDARABINE PHOSPHATE [Suspect]
     Indication: ACUTE MYELOID LEUKAEMIA
     Dosage: 10 MG/M2 IV
     Route: 042
     Dates: start: 20070926, end: 20070929
  3. BUSULFAN [Suspect]
     Indication: ACUTE MYELOID LEUKAEMIA
     Dosage: 130 MG/M2 IV
     Route: 042
     Dates: start: 20070926, end: 20070929
  4. STEROID THERAPY [Concomitant]

REACTIONS (10)
  - AGGRESSION [None]
  - AGITATION [None]
  - BIPOLAR DISORDER [None]
  - CONDITION AGGRAVATED [None]
  - CYTOMEGALOVIRUS TEST POSITIVE [None]
  - HALLUCINATION [None]
  - PLEURAL EFFUSION [None]
  - PNEUMONIA [None]
  - PNEUMONITIS [None]
  - PSYCHOTIC DISORDER [None]
